FAERS Safety Report 6388566-6 (Version None)
Quarter: 2009Q4

REPORT INFORMATION
  Report Type: 
  Country: None (occurrence: None)
  Receive Date: 20091001
  Receipt Date: 20091001
  Transmission Date: 20100525
  Serious: No
  Sender: FDA-Public Use
  Company Number: None

PATIENT
  Sex: Female
  Weight: 99.7913 kg

DRUGS (2)
  1. VYTORIN [Suspect]
     Indication: BLOOD CHOLESTEROL INCREASED
     Dates: start: 20061110, end: 20070720
  2. VYTORIN [Suspect]
     Indication: BLOOD PRESSURE
     Dates: start: 20061110, end: 20070720

REACTIONS (6)
  - DYSSTASIA [None]
  - GAIT DISTURBANCE [None]
  - GENERAL PHYSICAL HEALTH DETERIORATION [None]
  - LOSS OF EMPLOYMENT [None]
  - PAIN IN EXTREMITY [None]
  - WEIGHT INCREASED [None]
